FAERS Safety Report 5504078-3 (Version None)
Quarter: 2007Q4

REPORT INFORMATION
  Report Type: 
  Country: None (occurrence: None)
  Receive Date: 20071030
  Receipt Date: 20071016
  Transmission Date: 20080405
  Serious: Yes (Other)
  Sender: FDA-Public Use
  Company Number: 237901K07USA

PATIENT
  Age: 43 Year
  Sex: Male

DRUGS (4)
  1. REBIF [Suspect]
     Indication: MULTIPLE SCLEROSIS
     Dosage: 44 MCG, 3 IN 1 WEEKS, SUBCUTANEOUS
     Route: 058
     Dates: start: 20040119, end: 20070903
  2. OXYCODONE HCL [Concomitant]
  3. ZANAFLEX [Concomitant]
  4. ZOMIG [Concomitant]

REACTIONS (1)
  - RETINAL ISCHAEMIA [None]
